FAERS Safety Report 18495639 (Version 1)
Quarter: 2020Q4

REPORT INFORMATION
  Report Type: Spontaneous
  Country: CO (occurrence: CO)
  Receive Date: 20201112
  Receipt Date: 20201112
  Transmission Date: 20210114
  Serious: Yes (Other)
  Sender: FDA-Public Use
  Company Number: CO-PFIZER INC-2020427493

PATIENT
  Age: 54 Year
  Sex: Female

DRUGS (1)
  1. REAMPLA [Suspect]
     Active Substance: PALBOCICLIB
     Dosage: 125 MG
     Route: 048

REACTIONS (4)
  - Vomiting [Unknown]
  - Cholelithiasis [Unknown]
  - Dry skin [Not Recovered/Not Resolved]
  - Alopecia [Unknown]
